FAERS Safety Report 6211647-4 (Version None)
Quarter: 2009Q2

REPORT INFORMATION
  Report Type: 
  Country: None (occurrence: None)
  Receive Date: 20090602
  Receipt Date: 20090526
  Transmission Date: 20091009
  Serious: Yes (Hospitalization)
  Sender: FDA-Public Use
  Company Number: A0786108A

PATIENT
  Sex: Male

DRUGS (8)
  1. LAMICTAL [Suspect]
     Indication: BIPOLAR DISORDER
     Route: 048
  2. CLONAZEPAM [Concomitant]
  3. CLONIDINE HCL [Concomitant]
  4. DULOXETINE HYDROCHLORIDE [Concomitant]
  5. LITHIUM CARBONATE [Concomitant]
  6. OMEPRAZOLE [Concomitant]
  7. TRAZODONE HCL [Concomitant]
  8. GEODON [Concomitant]

REACTIONS (2)
  - SUICIDAL IDEATION [None]
  - SUICIDE ATTEMPT [None]
